FAERS Safety Report 20389956 (Version 1)
Quarter: 2022Q1

REPORT INFORMATION
  Report Type: Report from Study
  Country: US (occurrence: US)
  Receive Date: 20220128
  Receipt Date: 20220128
  Transmission Date: 20220424
  Serious: Yes (Hospitalization, Other)
  Sender: FDA-Public Use
  Company Number: US-AMGEN-USACT2022011394

PATIENT
  Age: 18 Year
  Sex: Female
  Weight: 83.8 kg

DRUGS (3)
  1. BLINATUMOMAB [Suspect]
     Active Substance: BLINATUMOMAB
     Indication: B precursor type acute leukaemia
     Dosage: 15 MICROGRAM/KILOGRAM, QD/ TOTAL DOSE: 44.25 MCG
     Route: 042
     Dates: start: 20211221, end: 20211226
  2. LEUCOVORIN CALCIUM [Suspect]
     Active Substance: LEUCOVORIN CALCIUM
     Indication: B precursor type acute leukaemia
     Dosage: TOTAL DOSE: 28.6 MG/ THIRD DOSE GIVEN AFTER EVENT ON 26/DEC/2021
     Route: 065
     Dates: start: 20211222
  3. METHOTREXATE [Suspect]
     Active Substance: METHOTREXATE
     Indication: B precursor type acute leukaemia
     Dosage: TOTAL DOSE: 15 MG
     Route: 037

REACTIONS (1)
  - Transient ischaemic attack [Recovered/Resolved]

NARRATIVE: CASE EVENT DATE: 20211226
